FAERS Safety Report 6322901-X (Version None)
Quarter: 2009Q3

REPORT INFORMATION
  Report Type: 
  Country: None (occurrence: None)
  Receive Date: 20090824
  Receipt Date: 20090820
  Transmission Date: 20100115
  Serious: Yes (Death, Hospitalization)
  Sender: FDA-Public Use
  Company Number: PHHY2009BR26155

PATIENT
  Sex: Female

DRUGS (2)
  1. FORASEQ [Suspect]
     Indication: DYSPNOEA
     Dosage: TWICE DAILY
  2. RYTMONORM [Concomitant]
     Indication: ARRHYTHMIA
     Dosage: 40 MG, 1 TABLET DAILY
     Route: 048

REACTIONS (3)
  - LUNG NEOPLASM MALIGNANT [None]
  - METASTASIS [None]
  - RESPIRATORY FAILURE [None]
